FAERS Safety Report 8459505-9 (Version None)
Quarter: 2012Q2

REPORT INFORMATION
  Report Type: 
  Country: None (occurrence: None)
  Receive Date: 20120622
  Receipt Date: 20120612
  Transmission Date: 20120825
  Serious: Yes (Hospitalization)
  Sender: FDA-Public Use
  Company Number: US-ELI_LILLY_AND_COMPANY-US201103008418

PATIENT
  Sex: Female
  Weight: 47.166 kg

DRUGS (17)
  1. SIMVASTATIN [Concomitant]
     Dosage: 10 MG, QD
     Route: 048
  2. HYDROCHLOROTHIAZIDE [Concomitant]
     Dosage: 25 MG, QD
  3. OMEPRAZOLE [Concomitant]
     Dosage: 20 MG, QD
     Route: 048
  4. FORTEO [Suspect]
     Dosage: 20 UG, QD
  5. ASPIRIN [Concomitant]
     Dosage: 325 MG, QD
  6. CALCIUM [Concomitant]
  7. CALCIUM + VITAMIN D [Concomitant]
     Dosage: 1 DF, QD
     Route: 048
  8. PREDNISONE TAB [Suspect]
     Dosage: 10 MG, PRN
  9. FORTEO [Suspect]
     Dosage: 20 UG, QD
     Route: 065
  10. ASCORBIC ACID [Concomitant]
     Dosage: 250 MG, QD
     Route: 048
  11. FORTEO [Suspect]
     Indication: OSTEOPOROSIS
     Dosage: 20 UG, QD
     Dates: start: 20110321
  12. FORTEO [Suspect]
     Dosage: 20 UG, QD
  13. FORTEO [Suspect]
     Dosage: 20 UG, QD
  14. MIRALAX [Concomitant]
     Dosage: 17 G, PRN
  15. VITAMIN D [Concomitant]
     Dosage: 2000 U, QD
     Route: 048
  16. FERROUS SULFATE TAB [Concomitant]
     Dosage: 325 MG, QD
     Route: 048
  17. AMLODIPINE [Concomitant]
     Dosage: 5 MG, PRN
     Route: 048

REACTIONS (13)
  - INJECTION SITE HAEMATOMA [None]
  - PNEUMONIA [None]
  - BLOOD PRESSURE DECREASED [None]
  - HEADACHE [None]
  - ACUTE RESPIRATORY FAILURE [None]
  - SOMNOLENCE [None]
  - HYPOACUSIS [None]
  - HYPOTENSION [None]
  - ANAEMIA [None]
  - BLOOD PRESSURE INCREASED [None]
  - DYSPHONIA [None]
  - CONSTIPATION [None]
  - HYPOAESTHESIA [None]
